FAERS Safety Report 18299015 (Version 1)
Quarter: 2020Q3

REPORT INFORMATION
  Report Type: Spontaneous
  Country: DE (occurrence: FR)
  Receive Date: 20200922
  Receipt Date: 20200922
  Transmission Date: 20201103
  Serious: Yes (Hospitalization)
  Sender: FDA-Public Use
  Company Number: FR-ELI_LILLY_AND_COMPANY-FR202009007753

PATIENT
  Age: 63 Year
  Sex: Male
  Weight: 54 kg

DRUGS (4)
  1. ERBITUX [Suspect]
     Active Substance: CETUXIMAB
     Indication: ORAL NEOPLASM
     Dosage: 650 MG, UNKNOWN
     Route: 041
     Dates: start: 20200507, end: 20200507
  2. POLARAMINE [Concomitant]
     Active Substance: DEXCHLORPHENIRAMINE MALEATE
     Indication: PREMEDICATION
     Dosage: 5 MG, UNKNOWN
     Route: 042
     Dates: start: 20200507, end: 20200507
  3. METHYLPREDNISOLONE MERCK [Concomitant]
     Active Substance: METHYLPREDNISOLONE
     Indication: PREMEDICATION
     Dosage: 60 MG, UNKNOWN
     Route: 042
     Dates: start: 20200507, end: 20200507
  4. ONDANSETRON ACCORD [Concomitant]
     Active Substance: ONDANSETRON
     Indication: PREMEDICATION
     Dosage: 8 MG, UNKNOWN
     Route: 042
     Dates: start: 20200507, end: 20200507

REACTIONS (4)
  - Pruritus [Recovered/Resolved]
  - Nausea [Recovered/Resolved]
  - Infusion related reaction [Recovered/Resolved]
  - Burn oesophageal [Recovered/Resolved]

NARRATIVE: CASE EVENT DATE: 20200507
